FAERS Safety Report 9859954 (Version 1)
Quarter: 2014Q1

REPORT INFORMATION
  Report Type: Spontaneous
  Country: BR (occurrence: BR)
  Receive Date: 20140131
  Receipt Date: 20140131
  Transmission Date: 20141002
  Serious: Yes (Other)
  Sender: FDA-Public Use
  Company Number: BR-BIOMARINAP-BR-2014-102340

PATIENT
  Age: 21 Year
  Sex: Male
  Weight: 36 kg

DRUGS (1)
  1. NAGLAZYME [Suspect]
     Indication: MUCOPOLYSACCHARIDOSIS VI
     Dosage: 35 MG, QW
     Dates: start: 20080901

REACTIONS (1)
  - Convulsion [Unknown]
